FAERS Safety Report 7492764-8 (Version None)
Quarter: 2011Q2

REPORT INFORMATION
  Report Type: 
  Country: None (occurrence: None)
  Receive Date: 20110519
  Receipt Date: 20110215
  Transmission Date: 20111010
  Serious: Yes (Death, Other)
  Sender: FDA-Public Use
  Company Number: US-BAYER-200923798NA

PATIENT
  Age: 50 Year
  Sex: Male
  Weight: 69.8 kg

DRUGS (38)
  1. MAGNEVIST [Suspect]
     Dosage: 39 ML, ONCE
     Dates: start: 20060726, end: 20060726
  2. PREDNISONE [Concomitant]
  3. PERCOCET [Concomitant]
  4. CORTISONE ACETATE [Concomitant]
  5. DARBEPOETIN ALFA [Concomitant]
  6. MICARDIS [Concomitant]
  7. ASPIRIN [Concomitant]
  8. LOPRESSOR [Concomitant]
  9. UNSPECIFIED GADOLINIUM BASED CONTRAST AGENT [Suspect]
     Indication: ANGIOGRAM
     Dates: start: 20001001, end: 20001001
  10. OMNISCAN [Suspect]
     Indication: NUCLEAR MAGNETIC RESONANCE IMAGING
  11. LANTHANUM CARBONATE [Concomitant]
  12. ZEMPLAR [Concomitant]
  13. FLORINEF [Concomitant]
  14. MAGNEVIST [Suspect]
     Dosage: 40 ML, ONCE
     Dates: start: 20060809, end: 20060809
  15. UNSPECIFIED GADOLINIUM BASED CONTRAST AGENT [Suspect]
     Dosage: UNK
     Dates: start: 20060714, end: 20060714
  16. PROHANCE [Suspect]
     Indication: NUCLEAR MAGNETIC RESONANCE IMAGING
  17. MINOXIDIL [Concomitant]
  18. CLONIDINE [Concomitant]
  19. EPOGEN [Concomitant]
  20. HECTOROL [Concomitant]
  21. PROCARDIA [Concomitant]
  22. VANCOMYCIN [Concomitant]
  23. DIGOXIN [Concomitant]
  24. RENAPHRO [Concomitant]
  25. RENAGEL [Concomitant]
  26. COREG [Concomitant]
  27. MAGNEVIST [Suspect]
     Indication: NUCLEAR MAGNETIC RESONANCE IMAGING
     Dosage: 48 ML, ONCE
     Route: 042
     Dates: start: 20000205, end: 20000205
  28. MULTIHANCE [Suspect]
     Indication: NUCLEAR MAGNETIC RESONANCE IMAGING
  29. TUMS [CALCIUM CARBONATE] [Concomitant]
  30. AMIODARONE HCL [Concomitant]
  31. MAGNEVIST [Suspect]
     Dosage: 48 ML, ONCE
     Route: 042
     Dates: start: 20000505, end: 20000505
  32. UNSPECIFIED GADOLINIUM BASED CONTRAST AGENT [Suspect]
     Indication: NUCLEAR MAGNETIC RESONANCE IMAGING
     Dosage: UNK
     Dates: start: 20011217, end: 20011217
  33. OPTIMARK [Suspect]
     Indication: NUCLEAR MAGNETIC RESONANCE IMAGING
  34. PHOSLO [Concomitant]
  35. PLAQUENIL [Concomitant]
  36. FERRLECIT [Concomitant]
  37. IMURAN [Concomitant]
  38. NORVASC [Concomitant]

REACTIONS (18)
  - OEDEMA PERIPHERAL [None]
  - GENERAL PHYSICAL HEALTH DETERIORATION [None]
  - SKIN HYPERTROPHY [None]
  - JOINT STIFFNESS [None]
  - GAIT DISTURBANCE [None]
  - SKIN INDURATION [None]
  - SKIN DISCOLOURATION [None]
  - SKIN FIBROSIS [None]
  - PAIN [None]
  - MOBILITY DECREASED [None]
  - SKIN HYPERPIGMENTATION [None]
  - ARTHRALGIA [None]
  - MUSCULAR WEAKNESS [None]
  - NEPHROGENIC SYSTEMIC FIBROSIS [None]
  - MUSCLE CONTRACTIONS INVOLUNTARY [None]
  - MUSCULOSKELETAL STIFFNESS [None]
  - FIBROSIS [None]
  - JOINT RANGE OF MOTION DECREASED [None]
